FAERS Safety Report 17240275 (Version 4)
Quarter: 2020Q1

REPORT INFORMATION
  Report Type: Report from Study
  Country: None (occurrence: CH)
  Receive Date: 20200107
  Receipt Date: 20200114
  Transmission Date: 20200409
  Serious: Yes (Death)
  Sender: FDA-Public Use
  Company Number: CH-ABBVIE-20K-151-3220941-00

PATIENT
  Age: 78 Year
  Sex: Female

DRUGS (3)
  1. DUODOPA [Suspect]
     Active Substance: CARBIDOPA\LEVODOPA
     Indication: PARKINSON^S DISEASE
     Route: 050
     Dates: start: 20150427, end: 20190401
  2. DUODOPA [Suspect]
     Active Substance: CARBIDOPA\LEVODOPA
     Dosage: MD:4.5 ML, CR DAY: 1.5 ML/H, CR NIGHT: 0.0 ML/H ED: 2.0 ML/H?16 H THERAPY
     Route: 050
     Dates: start: 20190401, end: 20190814
  3. DUODOPA [Suspect]
     Active Substance: CARBIDOPA\LEVODOPA
     Dosage: MD:4.5 ML, CR DAY: 1.5 ML/H, CR NIGHT: 0.0 ML/H ED: 1.5 ML/H?16 H THERAPY?20 MG/ML 5 MG/ML
     Route: 050
     Dates: start: 20190814

REACTIONS (3)
  - Bedridden [Fatal]
  - General physical condition abnormal [Fatal]
  - Asthenia [Fatal]

NARRATIVE: CASE EVENT DATE: 201912
